FAERS Safety Report 5892367-2 (Version None)
Quarter: 2008Q3

REPORT INFORMATION
  Report Type: 
  Country: None (occurrence: None)
  Receive Date: 20080919
  Receipt Date: 20080919
  Transmission Date: 20090109
  Serious: Yes (Disabling)
  Sender: FDA-Public Use
  Company Number: None

PATIENT
  Age: 58 Year
  Weight: 81.6475 kg

DRUGS (2)
  1. CIPRO [Suspect]
     Indication: SKIN INFECTION
     Dosage: DONT RECALL ONCE A DAY PO
     Route: 048
  2. LEVAQUIN [Suspect]
     Indication: BRONCHITIS
     Dosage: DONT RECALL ONCE A DAY PO
     Route: 048

REACTIONS (5)
  - MUSCLE STRAIN [None]
  - PAIN [None]
  - PAIN IN EXTREMITY [None]
  - TENDONITIS [None]
  - WALKING AID USER [None]
